FAERS Safety Report 9495446 (Version 2)
Quarter: 2013Q3

REPORT INFORMATION
  Report Type: Spontaneous
  Country: US (occurrence: US)
  Receive Date: 20130903
  Receipt Date: 20130912
  Transmission Date: 20140515
  Serious: No
  Sender: FDA-Public Use
  Company Number: US-PFIZER INC-2013251981

PATIENT
  Age: 62 Year
  Sex: Female
  Weight: 51 kg

DRUGS (2)
  1. PREMARIN [Suspect]
     Indication: MENOPAUSAL SYMPTOMS
     Dosage: UNK, TWO TO THREE TIMES A WEEK
     Route: 067
     Dates: start: 201308, end: 201308
  2. LEVOTHYROXINE [Concomitant]
     Indication: THYROID DISORDER
     Dosage: 125 UG, 1X/DAY

REACTIONS (4)
  - Hypersensitivity [Unknown]
  - Erythema [Unknown]
  - Vulvovaginal pruritus [Unknown]
  - Vulvovaginal discomfort [Unknown]
